FAERS Safety Report 5135991-7 (Version None)
Quarter: 2006Q4

REPORT INFORMATION
  Report Type: 
  Country: None (occurrence: None)
  Receive Date: 20061020
  Receipt Date: 20061010
  Transmission Date: 20070319
  Serious: Yes (Hospitalization)
  Sender: FDA-Public Use
  Company Number: 2006124934

PATIENT
  Age: 49 Year
  Sex: Male
  Weight: 80 kg

DRUGS (20)
  1. CLINDAMYCIN HCL [Suspect]
     Indication: BACTERIAL INFECTION
     Dosage: 1800 MG (600 MG, 3 IN 1 D)
     Dates: start: 20060620, end: 20060628
  2. BENZYLPENICILLIN (BENZYPENICILLIN) [Suspect]
     Indication: BACTERIAL INFECTION
     Dosage: 6000000 I.U. (1000000 I.U., 6 IN 1 D), INTRAVENOUS
     Route: 042
     Dates: start: 20060620, end: 20060628
  3. CIPROFLOXACIN [Suspect]
     Indication: BACTERIAL INFECTION
     Dosage: 1000 MG (50 MG, 2 IN 1 D), ORAL
     Route: 048
  4. ENALAPRIL MALEATE [Concomitant]
  5. CALCICHEW (CALCIUM CARBONATE) [Concomitant]
  6. SODIUM POLYSTYRENE SULFONATE [Concomitant]
  7. TAVEGYL (CLEMASTINE) [Concomitant]
  8. FRAXIPARINE (HEPARIN-FRACTION, CALCIUM SALT) [Concomitant]
  9. ACETAMINOPHEN [Concomitant]
  10. FUROSEMIDE [Concomitant]
  11. FERROGRADUMET (FERROUS SULFATE) [Concomitant]
  12. SELOKEEN (METOPROLOL TARTRATE) [Concomitant]
  13. ALFACALCIDOL (ALFACALCIDOL) [Concomitant]
  14. FOLIC ACID [Concomitant]
  15. SIMVASTATIN [Concomitant]
  16. ARANESP [Concomitant]
  17. SODIUM HYDROGEN CARBONATE (SODIUM BICARBONATE) [Concomitant]
  18. COZAAR [Concomitant]
  19. NORMISON (TEMAZEPAM) [Concomitant]
  20. PANTOPRAZOLE SODIUM [Concomitant]

REACTIONS (1)
  - HEPATITIS CHOLESTATIC [None]
